FAERS Safety Report 4466080-2 (Version None)
Quarter: 2004Q4

REPORT INFORMATION
  Report Type: 
  Country: None (occurrence: None)
  Receive Date: 20041005
  Receipt Date: 20040831
  Transmission Date: 20050328
  Serious: Yes (Death, Life-Threatening, Hospitalization)
  Sender: FDA-Public Use
  Company Number: PHBS2004CA11568

PATIENT
  Age: 71 Year
  Sex: Male

DRUGS (7)
  1. GLEEVEC [Suspect]
     Indication: CHRONIC MYELOID LEUKAEMIA
     Dosage: 400 MG, QD
     Route: 048
     Dates: start: 20040812, end: 20040826
  2. ALLOPURINOL [Concomitant]
     Dosage: 300 MG, QD
     Route: 065
     Dates: start: 20040805, end: 20040826
  3. HYDROXYZINE [Concomitant]
     Dosage: 250 MG/D
     Route: 065
     Dates: start: 20040805, end: 20040812
  4. HYDREA [Concomitant]
     Route: 065
     Dates: start: 20040805
  5. TYLENOL [Concomitant]
     Dosage: OCCASIONALLY
     Route: 065
  6. OXAZEPAM [Concomitant]
     Dosage: 30 MG, QHS
     Route: 065
  7. FOSINOPRIL [Concomitant]
     Dosage: 20 MG/D
     Route: 065
     Dates: start: 20040513

REACTIONS (14)
  - ALANINE AMINOTRANSFERASE INCREASED [None]
  - ASPARTATE AMINOTRANSFERASE INCREASED [None]
  - BLOOD ALKALINE PHOSPHATASE INCREASED [None]
  - BLOOD BILIRUBIN INCREASED [None]
  - BLOOD CREATININE INCREASED [None]
  - BLOOD POTASSIUM INCREASED [None]
  - DEATH [None]
  - DIALYSIS [None]
  - HAEMOGLOBIN DECREASED [None]
  - HYPERKALAEMIA [None]
  - LIVER FUNCTION TEST ABNORMAL [None]
  - PROTEINURIA [None]
  - RENAL FAILURE [None]
  - WHITE BLOOD CELL COUNT ABNORMAL [None]
